FAERS Safety Report 9671558 (Version 1)
Quarter: 2013Q4

REPORT INFORMATION
  Report Type: Spontaneous
  Country: TR (occurrence: None)
  Receive Date: 20131104
  Receipt Date: 20131104
  Transmission Date: 20140711
  Serious: Yes (Hospitalization)
  Sender: FDA-Public Use
  Company Number: IPC201310-000432

PATIENT
  Age: 57 Year
  Sex: Female

DRUGS (5)
  1. FUROSEMIDE [Suspect]
     Dosage: POST OPERATIVE EVERY OTHER DAY
  2. ZOLEDRONIC ACID [Suspect]
     Indication: OSTEOPENIA
     Dosage: 5 MG/YEAR
     Route: 042
  3. HYDROXYCLOROQUINE [Concomitant]
  4. PREDNISOLONE [Suspect]
     Indication: SYSTEMIC LUPUS ERYTHEMATOSUS
     Dosage: 5 MG/DAY FOR 5 YEARS
  5. LANSOPRAZOLE (LANSOPRAZOLE) (LANZOPRAZOLE) [Concomitant]

REACTIONS (7)
  - Hypocalcaemia [None]
  - Hyponatraemia [None]
  - Hypokalaemia [None]
  - Dyspnoea [None]
  - Pleural effusion [None]
  - Blood urea increased [None]
  - Blood creatinine increased [None]
